FAERS Safety Report 8258535-X (Version None)
Quarter: 2012Q2

REPORT INFORMATION
  Report Type: 
  Country: None (occurrence: None)
  Receive Date: 20120404
  Receipt Date: 20120326
  Transmission Date: 20120825
  Serious: Yes (Other)
  Sender: FDA-Public Use
  Company Number: US-JNJFOC-20120313115

PATIENT
  Sex: Male
  Weight: 112.95 kg

DRUGS (6)
  1. LIPITOR [Concomitant]
     Indication: BLOOD CHOLESTEROL INCREASED
  2. ASTHMA INHALER [Concomitant]
     Indication: ASTHMA
  3. BLOOD PRESSURE MEDICATION NOS [Concomitant]
     Indication: HYPERTENSION
  4. DURAGESIC-100 [Suspect]
     Indication: PAIN
     Route: 062
     Dates: start: 20120326
  5. DURAGESIC-100 [Suspect]
     Route: 062
     Dates: start: 20120101, end: 20120301
  6. PERCOCET [Suspect]
     Indication: PAIN
     Dosage: AS NEEDED
     Route: 048
     Dates: start: 20120323, end: 20120326

REACTIONS (7)
  - SENSORY DISTURBANCE [None]
  - PRESYNCOPE [None]
  - DYSPNOEA [None]
  - WRONG TECHNIQUE IN DRUG USAGE PROCESS [None]
  - PAIN [None]
  - PARAESTHESIA [None]
  - PRODUCT QUALITY ISSUE [None]
